FAERS Safety Report 11326493 (Version 2)
Quarter: 2016Q1

REPORT INFORMATION
  Report Type: Spontaneous
  Country: IT (occurrence: IT)
  Receive Date: 20150731
  Receipt Date: 20160126
  Transmission Date: 20160525
  Serious: Yes (Death, Hospitalization)
  Sender: FDA-Public Use
  Company Number: IT-SA-2015SA109430

PATIENT
  Age: 69 Year
  Sex: Female

DRUGS (4)
  1. CEFOTAXIME SODIUM [Suspect]
     Active Substance: CEFOTAXIME SODIUM
     Route: 065
  2. VANCOMYCIN [Suspect]
     Active Substance: VANCOMYCIN
     Indication: CLOSTRIDIUM DIFFICILE COLITIS
     Dosage: DIRECTLY GIVEN IN COLON
  3. METRONIDAZOLE. [Suspect]
     Active Substance: METRONIDAZOLE
     Indication: CLOSTRIDIUM DIFFICILE COLITIS
     Route: 042
  4. VANCOMYCIN [Suspect]
     Active Substance: VANCOMYCIN
     Indication: CLOSTRIDIUM DIFFICILE COLITIS
     Route: 048

REACTIONS (7)
  - Diarrhoea [Fatal]
  - Blood albumin decreased [Fatal]
  - Drug ineffective [Unknown]
  - White blood cell count increased [Fatal]
  - Clostridium difficile colitis [Fatal]
  - Septic shock [Fatal]
  - Blood lactic acid increased [Unknown]
